FAERS Safety Report 8303476-2 (Version None)
Quarter: 2012Q2

REPORT INFORMATION
  Report Type: 
  Country: None (occurrence: None)
  Receive Date: 20120423
  Receipt Date: 20120417
  Transmission Date: 20120825
  Serious: No
  Sender: FDA-Public Use
  Company Number: US-PFIZER INC-2012095523

PATIENT
  Sex: Male

DRUGS (2)
  1. TOVIAZ [Suspect]
     Dosage: 4 MG, 1X/DAY
     Route: 048
     Dates: end: 20120416
  2. TOVIAZ [Suspect]
     Dosage: UNK
     Route: 048
     Dates: end: 20120416

REACTIONS (1)
  - BACK PAIN [None]
